FAERS Safety Report 25759909 (Version 2)
Quarter: 2025Q3

REPORT INFORMATION
  Report Type: Spontaneous
  Country: US (occurrence: US)
  Receive Date: 20250904
  Receipt Date: 20250910
  Transmission Date: 20251020
  Serious: No
  Sender: MACLEODS
  Company Number: US-MACLEODS PHARMA-MAC2025054972

PATIENT

DRUGS (1)
  1. LEVOTHYROXINE SODIUM [Suspect]
     Active Substance: LEVOTHYROXINE SODIUM
     Indication: Product used for unknown indication
     Route: 065
     Dates: start: 20250719

REACTIONS (9)
  - Hot flush [Unknown]
  - Erythema [Unknown]
  - Dermatitis [Unknown]
  - Skin warm [Unknown]
  - Headache [Unknown]
  - Palpitations [Unknown]
  - Fatigue [Unknown]
  - Product substitution issue [Unknown]
  - Recalled product administered [Unknown]

NARRATIVE: CASE EVENT DATE: 20250722
